FAERS Safety Report 6596865-8 (Version None)
Quarter: 2010Q1

REPORT INFORMATION
  Report Type: 
  Country: None (occurrence: None)
  Receive Date: 20100212
  Receipt Date: 20090629
  Transmission Date: 20100710
  Serious: No
  Sender: FDA-Public Use
  Company Number: 2009-00557

PATIENT
  Age: 83 Year
  Sex: Female
  Weight: 72.5755 kg

DRUGS (11)
  1. ZICAM COLD REMEDY NASAL GEL SWABS [Suspect]
     Indication: NASAL CONGESTION
     Dosage: Q HS, 2-3 YRS; 2-3 YRS AGO-ONGOING
  2. ZICAM SINUS RELIEF NASAL GEL [Suspect]
     Indication: NASAL CONGESTION
     Dosage: QD-BID, 2-3 YRS; 2-3 YRS AGO-ONGOING
  3. LIPITOR [Concomitant]
  4. SEROQUEL [Concomitant]
  5. LEVOTHYROXINE [Concomitant]
  6. ENALAPRIL MALEATE [Concomitant]
  7. ROPINIROLE [Concomitant]
  8. ARICEPT [Concomitant]
  9. MULTI-VITAMIN [Concomitant]
  10. CALCIUM WITH VITAMIN D [Concomitant]
  11. ZYRTEC [Concomitant]

REACTIONS (2)
  - AGEUSIA [None]
  - ANOSMIA [None]
